FAERS Safety Report 20444104 (Version 2)
Quarter: 2022Q2

REPORT INFORMATION
  Report Type: Spontaneous
  Country: US (occurrence: US)
  Receive Date: 20220208
  Receipt Date: 20220415
  Transmission Date: 20220720
  Serious: No
  Sender: FDA-Public Use
  Company Number: US-PFIZER INC-2021713224

PATIENT
  Age: 85 Year
  Sex: Female
  Weight: 68.49 kg

DRUGS (2)
  1. IBRANCE [Suspect]
     Active Substance: PALBOCICLIB
     Indication: Breast cancer female
     Dosage: 100 MG
  2. IBRANCE [Suspect]
     Active Substance: PALBOCICLIB
     Dosage: 100 MG, CYCLIC(100MG ONCE A DAY FOR THREE WEEKS THEN ONE WEEK OFF)
     Dates: start: 201910

REACTIONS (3)
  - Product dose omission issue [Unknown]
  - Neoplasm progression [Unknown]
  - Illness [Unknown]
